FAERS Safety Report 6231633-8 (Version None)
Quarter: 2009Q2

REPORT INFORMATION
  Report Type: 
  Country: None (occurrence: None)
  Receive Date: 20090616
  Receipt Date: 20090609
  Transmission Date: 20091009
  Serious: Yes (Other)
  Sender: FDA-Public Use
  Company Number: NL-WYE-G03827309

PATIENT
  Sex: Female

DRUGS (4)
  1. RELISTOR [Suspect]
     Dosage: UNK DOSE AND FREQUENCY
  2. BUSCOPAN [Concomitant]
  3. MORPHINE [Concomitant]
     Dosage: 2 MG/HOUR
  4. PRIMPERAN [Concomitant]

REACTIONS (1)
  - LOSS OF CONSCIOUSNESS [None]
